FAERS Safety Report 14120874 (Version 1)
Quarter: 2017Q4

REPORT INFORMATION
  Report Type: Spontaneous
  Country: US (occurrence: US)
  Receive Date: 20171024
  Receipt Date: 20171024
  Transmission Date: 20180321
  Serious: No
  Sender: FDA-Public Use
  Company Number: US-BRISTOL-MYERS SQUIBB COMPANY-BMS-2017-095184

PATIENT
  Age: 64 Year
  Sex: Male
  Weight: 125.62 kg

DRUGS (1)
  1. ORENCIA [Suspect]
     Active Substance: ABATACEPT
     Indication: RHEUMATOID ARTHRITIS
     Dosage: 125 MG/ML, QWK
     Route: 058
     Dates: start: 201707

REACTIONS (3)
  - Injection site injury [Unknown]
  - Device capturing issue [Unknown]
  - Product leakage [Unknown]

NARRATIVE: CASE EVENT DATE: 20171019
